FAERS Safety Report 18711272 (Version 1)
Quarter: 2021Q1

REPORT INFORMATION
  Report Type: Spontaneous
  Country: US (occurrence: US)
  Receive Date: 20210106
  Receipt Date: 20210106
  Transmission Date: 20210419
  Serious: Yes (Hospitalization)
  Sender: FDA-Public Use
  Company Number: None

PATIENT
  Sex: Male

DRUGS (5)
  1. RYTARY ER 48.75?195MG [Concomitant]
  2. CLONAZEPAM 0.5MG [Concomitant]
     Active Substance: CLONAZEPAM
  3. GOCOVRI [Suspect]
     Active Substance: AMANTADINE
     Indication: PARKINSON^S DISEASE
  4. ATORVASTATIN 40MG [Concomitant]
     Active Substance: ATORVASTATIN
  5. PRAMIPEXOLE 0.5MG [Concomitant]
     Active Substance: PRAMIPEXOLE

REACTIONS (1)
  - Hallucination [None]
